FAERS Safety Report 21632738 (Version 1)
Quarter: 2022Q4

REPORT INFORMATION
  Report Type: Spontaneous
  Country: DE (occurrence: DE)
  Receive Date: 20221123
  Receipt Date: 20221123
  Transmission Date: 20230113
  Serious: Yes (Other)
  Sender: FDA-Public Use
  Company Number: DE-ADVANZ PHARMA-202211008045

PATIENT

DRUGS (1)
  1. HYDROCHLOROTHIAZIDE\METOPROLOL [Suspect]
     Active Substance: HYDROCHLOROTHIAZIDE\METOPROLOL
     Indication: Product used for unknown indication
     Dosage: UNK, BELOC-ZOK COMP, PROLONGED-RELEASE TABLET; SR TABLET
     Route: 065
     Dates: start: 2004, end: 2022

REACTIONS (1)
  - Heart rate decreased [Not Recovered/Not Resolved]
